FAERS Safety Report 19836795 (Version 1)
Quarter: 2021Q3

REPORT INFORMATION
  Report Type: Other
  Country: IN (occurrence: IN)
  Receive Date: 20210914
  Receipt Date: 20210914
  Transmission Date: 20211014
  Serious: Yes (Hospitalization, Other)
  Sender: FDA-Public Use
  Company Number: IN-B.BRAUN MEDICAL INC.-2118365

PATIENT
  Age: 60 Year
  Sex: Male

DRUGS (1)
  1. 70% DEXTROSE INJECTION USP 0264?7387?50 [Suspect]
     Active Substance: DEXTROSE
     Indication: CARDIAC FAILURE ACUTE

REACTIONS (1)
  - Drug ineffective for unapproved indication [Recovered/Resolved]
